FAERS Safety Report 9859313 (Version 1)
Quarter: 2014Q1

REPORT INFORMATION
  Report Type: Spontaneous
  Country: AU (occurrence: None)
  Receive Date: 20140128
  Receipt Date: 20140128
  Transmission Date: 20141002
  Serious: Yes (Death)
  Sender: FDA-Public Use
  Company Number: AUR-APL-2014-00554

PATIENT
  Age: 34 Year
  Sex: Female

DRUGS (7)
  1. QUETIAPINE [Suspect]
     Indication: PRODUCT USED FOR UNKNOWN INDICATION
  2. DULOXETINE [Suspect]
     Indication: PRODUCT USED FOR UNKNOWN INDICATION
  3. AMITRIPTYLINE (AMITRIPTYLINE) [Concomitant]
  4. CODEINE (CODEINE) [Concomitant]
  5. DIAZEPAM (DIAZEPAM) [Concomitant]
  6. OXYCODONE (OXYCODONE) [Concomitant]
  7. METOCLOPRAMIDE (METOCLOPRAMIDE) [Concomitant]

REACTIONS (8)
  - Myocardial ischaemia [None]
  - Arteriosclerosis coronary artery [None]
  - Coronary artery stenosis [None]
  - Obesity [None]
  - Pleural effusion [None]
  - Thyroid neoplasm [None]
  - Asthma [None]
  - Renal artery arteriosclerosis [None]
